FAERS Safety Report 13469293 (Version 1)
Quarter: 2017Q2

REPORT INFORMATION
  Report Type: Spontaneous
  Country: US (occurrence: US)
  Receive Date: 20170421
  Receipt Date: 20170421
  Transmission Date: 20170830
  Serious: No
  Sender: FDA-Public Use
  Company Number: US-JNJFOC-20170412776

PATIENT
  Sex: Male

DRUGS (2)
  1. SUDAFED 12 HOUR [Suspect]
     Active Substance: PSEUDOEPHEDRINE HYDROCHLORIDE
     Route: 048
  2. SUDAFED 12 HOUR [Suspect]
     Active Substance: PSEUDOEPHEDRINE HYDROCHLORIDE
     Indication: PRODUCT USED FOR UNKNOWN INDICATION
     Dosage: 1 CAPLET AT 7PM AND ANOTHER CAPLET FOR WORK
     Route: 048

REACTIONS (10)
  - Impaired driving ability [Unknown]
  - Daydreaming [Unknown]
  - Euphoric mood [Unknown]
  - Adverse drug reaction [Unknown]
  - Anxiety [Unknown]
  - Discomfort [Unknown]
  - Sleep disorder [Unknown]
  - Night sweats [Unknown]
  - Illusion [Unknown]
  - Palpitations [Unknown]
